FAERS Safety Report 13713910 (Version 1)
Quarter: 2017Q3

REPORT INFORMATION
  Report Type: Spontaneous
  Country: US (occurrence: US)
  Receive Date: 20170704
  Receipt Date: 20170704
  Transmission Date: 20171127
  Serious: No
  Sender: FDA-Public Use
  Company Number: PHEH2017US019712

PATIENT
  Age: 38 Year
  Sex: Male

DRUGS (1)
  1. JADENU [Suspect]
     Active Substance: DEFERASIROX
     Indication: THALASSAEMIA
     Dosage: 28 MG/KG, QD
     Route: 048
     Dates: start: 20170510, end: 20170610

REACTIONS (3)
  - Blood creatinine increased [Recovered/Resolved]
  - Serum ferritin increased [Unknown]
  - Blood creatine increased [Recovered/Resolved]

NARRATIVE: CASE EVENT DATE: 20170510
